FAERS Safety Report 5025246-3 (Version None)
Quarter: 2006Q2

REPORT INFORMATION
  Report Type: 
  Country: None (occurrence: None)
  Receive Date: 20060426
  Receipt Date: 20060131
  Transmission Date: 20061013
  Serious: Yes (Other)
  Sender: FDA-Public Use
  Company Number: 2006016677

PATIENT
  Age: 59 Year
  Sex: Female
  Weight: 100.2449 kg

DRUGS (5)
  1. LYRICA [Suspect]
     Indication: BACK PAIN
     Dosage: 75 MG (75 MG,1 IN 1D)
     Dates: start: 20060101
  2. PREVACID [Concomitant]
  3. ANTI-DIABETICS (ANTI-DIABETICS) [Concomitant]
  4. ANTIHYPERTENSIVES (ANTIHYPERTENSIVES) [Concomitant]
  5. ALL OTHER THERAPEUTIC PRODUCTS (ALL OTHER THERAPEUTIC PRODUCTS) [Concomitant]

REACTIONS (3)
  - BLEPHAROSPASM [None]
  - SWELLING [None]
  - VISION BLURRED [None]
